FAERS Safety Report 17403241 (Version 1)
Quarter: 2020Q1

REPORT INFORMATION
  Report Type: Spontaneous
  Country: US (occurrence: US)
  Receive Date: 20200211
  Receipt Date: 20200211
  Transmission Date: 20200409
  Serious: No
  Sender: FDA-Public Use
  Company Number: US-UPSHER-SMITH LABORATORIES, LLC-2019USL00832

PATIENT
  Age: 40 Year
  Sex: Female
  Weight: 77.1 kg

DRUGS (1)
  1. TOSYMRA [Suspect]
     Active Substance: SUMATRIPTAN
     Indication: MIGRAINE
     Dosage: 10 MG, ONCE
     Route: 045
     Dates: start: 20191023, end: 20191023

REACTIONS (1)
  - Nasal discomfort [Recovered/Resolved]

NARRATIVE: CASE EVENT DATE: 20191023
